FAERS Safety Report 24311290 (Version 1)
Quarter: 2024Q3

REPORT INFORMATION
  Report Type: Report from Study
  Country: US (occurrence: US)
  Receive Date: 20240912
  Receipt Date: 20240912
  Transmission Date: 20241017
  Serious: Yes (Hospitalization, Other)
  Sender: ABBVIE
  Company Number: US-ABBVIE-5908607

PATIENT
  Sex: Male
  Weight: 93 kg

DRUGS (3)
  1. DUOPA [Suspect]
     Active Substance: CARBIDOPA\LEVODOPA
     Indication: Parkinson^s disease
     Route: 050
     Dates: start: 20181004
  2. DUOPA [Suspect]
     Active Substance: CARBIDOPA\LEVODOPA
     Route: 050
     Dates: start: 20181011
  3. CARBIDOPA AND LEVODOPA [Concomitant]
     Active Substance: CARBIDOPA\LEVODOPA
     Indication: Product used for unknown indication

REACTIONS (8)
  - Neurogenic bowel [Unknown]
  - Body temperature decreased [Recovered/Resolved]
  - Intestinal obstruction [Unknown]
  - Anaesthetic complication [Unknown]
  - Device connection issue [Unknown]
  - Device dislocation [Not Recovered/Not Resolved]
  - Device breakage [Unknown]
  - Faecaloma [Unknown]

NARRATIVE: CASE EVENT DATE: 20230101
